FAERS Safety Report 12381014 (Version 1)
Quarter: 2016Q2

REPORT INFORMATION
  Report Type: Spontaneous
  Country: FR (occurrence: FR)
  Receive Date: 20160518
  Receipt Date: 20160518
  Transmission Date: 20160815
  Serious: Yes (Other)
  Sender: FDA-Public Use
  Company Number: FR-PFIZER INC-2016257267

PATIENT
  Age: 27 Year
  Sex: Female

DRUGS (1)
  1. REVATIO [Suspect]
     Active Substance: SILDENAFIL CITRATE
     Indication: PULMONARY ARTERIAL HYPERTENSION
     Dosage: 20 MG, 4X/DAY
     Route: 048
     Dates: start: 20160227, end: 20160228

REACTIONS (3)
  - Erythrosis [Recovered/Resolved]
  - Face oedema [Recovered/Resolved]
  - Harlequin skin reaction [Recovered/Resolved]

NARRATIVE: CASE EVENT DATE: 20160227
